FAERS Safety Report 12132102 (Version 1)
Quarter: 2016Q1

REPORT INFORMATION
  Report Type: Spontaneous
  Country: GB (occurrence: GB)
  Receive Date: 20160301
  Receipt Date: 20160301
  Transmission Date: 20160526
  Serious: Yes (Other)
  Sender: FDA-Public Use
  Company Number: GB-TEVA-638079ISR

PATIENT

DRUGS (4)
  1. DOXORUBICIN [Suspect]
     Active Substance: DOXORUBICIN
  2. BLEOMYCIN [Suspect]
     Active Substance: BLEOMYCIN SULFATE
  3. DACARBAZINE. [Suspect]
     Active Substance: DACARBAZINE
  4. VINBLASTINE [Suspect]
     Active Substance: VINBLASTINE

REACTIONS (4)
  - Axillary vein thrombosis [Unknown]
  - Subclavian vein thrombosis [Unknown]
  - Jugular vein thrombosis [Unknown]
  - Deep vein thrombosis [Unknown]
